FAERS Safety Report 4694262-3 (Version None)
Quarter: 2005Q2

REPORT INFORMATION
  Report Type: 
  Country: None (occurrence: None)
  Receive Date: 20050620
  Receipt Date: 20041026
  Transmission Date: 20051028
  Serious: Yes (Life-Threatening, Hospitalization)
  Sender: FDA-Public Use
  Company Number: JP-BOEHRINGER INGELHEIM PHARMACEUTICALS, INC.-2004-BP-10727NB

PATIENT
  Sex: Female

DRUGS (9)
  1. MOBIC [Suspect]
     Indication: RHEUMATOID ARTHRITIS
     Route: 048
     Dates: start: 20030804, end: 20040118
  2. PREDONINE [Suspect]
     Indication: OEDEMA PERIPHERAL
     Route: 048
     Dates: start: 20020118, end: 20040118
  3. BENET [Suspect]
     Indication: OSTEOPOROSIS
     Route: 048
     Dates: start: 20021023, end: 20040118
  4. LORCAM [Suspect]
     Indication: LUMBAR SPINAL STENOSIS
     Route: 048
     Dates: start: 20021218, end: 20040118
  5. LASIX [Concomitant]
     Indication: OEDEMA PERIPHERAL
     Route: 048
     Dates: start: 20020201, end: 20040118
  6. MYONAL [Concomitant]
     Indication: LUMBAR SPINAL STENOSIS
     Route: 048
     Dates: start: 20020522, end: 20040118
  7. SELBEX [Concomitant]
     Indication: PROPHYLAXIS AGAINST GASTROINTESTINAL ULCER
     Route: 048
     Dates: start: 20020118, end: 20040118
  8. MAGNESIUM OXIDE (MAGNESIUM OXIDE) [Concomitant]
     Indication: CONSTIPATION
     Route: 048
     Dates: start: 20020501, end: 20040118
  9. PROCYLIN [Concomitant]
     Indication: LUMBAR SPINAL STENOSIS
     Route: 048
     Dates: start: 20011210, end: 20040118

REACTIONS (2)
  - GASTROINTESTINAL NECROSIS [None]
  - GASTROINTESTINAL PERFORATION [None]
